FAERS Safety Report 14282623 (Version 1)
Quarter: 2017Q4

REPORT INFORMATION
  Report Type: Spontaneous
  Country: US (occurrence: US)
  Receive Date: 20171213
  Receipt Date: 20171213
  Transmission Date: 20180321
  Serious: No
  Sender: FDA-Public Use
  Company Number: US-MISSION PHARMACAL COMPANY-2037136

PATIENT
  Age: 20 Year
  Sex: Female

DRUGS (2)
  1. POTASSIUM CITRATE. [Suspect]
     Active Substance: POTASSIUM CITRATE
     Indication: CYSTINURIA
     Route: 065
  2. THIOLA [Concomitant]
     Active Substance: TIOPRONIN
     Route: 065

REACTIONS (3)
  - Gastric ulcer [Unknown]
  - Abdominal pain [Unknown]
  - Gastrointestinal wall thinning [Unknown]
